FAERS Safety Report 14675836 (Version 2)
Quarter: 2018Q2

REPORT INFORMATION
  Report Type: Report from Study
  Country: JP (occurrence: JP)
  Receive Date: 20180323
  Receipt Date: 20180604
  Transmission Date: 20180711
  Serious: Yes (Life-Threatening, Disabling)
  Sender: FDA-Public Use
  Company Number: JP-SYNEX-T201801119

PATIENT
  Age: 66 Year
  Sex: Female
  Weight: 73 kg

DRUGS (18)
  1. NITRIC OXIDE. [Suspect]
     Active Substance: NITRIC OXIDE
     Indication: PULMONARY HYPERTENSION
     Dosage: 20 PPM,
     Dates: start: 20180211, end: 20180213
  2. NITRIC OXIDE. [Suspect]
     Active Substance: NITRIC OXIDE
     Dosage: 15 PPM
     Dates: start: 20180220, end: 20180220
  3. NICARDIPINE [Concomitant]
     Active Substance: NICARDIPINE
     Indication: HYPOTENSION
     Dosage: 3 ML/HR, INJECTION, CONTINUOUS
     Route: 042
     Dates: start: 20180209, end: 20180211
  4. NITRIC OXIDE. [Suspect]
     Active Substance: NITRIC OXIDE
     Dosage: 20 PPM
     Dates: start: 20180217, end: 20180220
  5. NITRIC OXIDE. [Suspect]
     Active Substance: NITRIC OXIDE
     Dosage: 1 PPM
     Dates: start: 20180226, end: 20180227
  6. DOBUPUM [Concomitant]
     Active Substance: DOBUTAMINE HYDROCHLORIDE
     Indication: CIRCULATORY COLLAPSE
     Dosage: 4 ML/HR, INJECTION, CONTINUOUS
     Route: 042
     Dates: start: 20180209, end: 20180228
  7. ANCARON [Concomitant]
     Active Substance: AMIODARONE HYDROCHLORIDE
     Indication: VENTRICULAR TACHYCARDIA
     Dosage: 17 ML/HR, INJECTION, CONTINUOUS
     Route: 042
     Dates: start: 20180213, end: 20180302
  8. NITRIC OXIDE. [Suspect]
     Active Substance: NITRIC OXIDE
     Dosage: 10 PPM
     Dates: start: 20180213, end: 20180214
  9. NITRIC OXIDE. [Suspect]
     Active Substance: NITRIC OXIDE
     Dosage: 5 PPM
     Dates: start: 20180214, end: 20180215
  10. NITRIC OXIDE. [Suspect]
     Active Substance: NITRIC OXIDE
     Dosage: 10 PPM
     Dates: start: 20180220, end: 20180221
  11. TANDETRON [Concomitant]
     Active Substance: ALPROSTADIL ALFADEX
     Indication: CIRCULATORY COLLAPSE
     Dosage: 3 ML/HR, INJECTION, CONTINUOUS
     Route: 042
     Dates: start: 20180209, end: 20180227
  12. ONOACT [Concomitant]
     Active Substance: LANDIOLOL HYDROCHLORIDE
     Indication: VENTRICULAR TACHYCARDIA
     Dosage: 3 ML/HR, INJECTION, CONTINUOUS
     Route: 042
     Dates: start: 20180212, end: 20180213
  13. NITRIC OXIDE. [Suspect]
     Active Substance: NITRIC OXIDE
     Dosage: 5 PPM
     Dates: start: 20180221, end: 20180226
  14. NITRIC OXIDE. [Suspect]
     Active Substance: NITRIC OXIDE
     Dosage: 3 PPM
     Dates: start: 20180226, end: 20180226
  15. NITRIC OXIDE. [Suspect]
     Active Substance: NITRIC OXIDE
     Dosage: 1 PPM
     Dates: start: 20180215, end: 20180215
  16. NITROGLYCERIN. [Concomitant]
     Active Substance: NITROGLYCERIN
     Indication: HYPOTENSION
     Dosage: 5 ML/HR, INJECTION, CONTINUOUS
     Route: 042
     Dates: start: 20180209, end: 20180217
  17. NITRIC OXIDE. [Suspect]
     Active Substance: NITRIC OXIDE
     Dosage: 15 PPM
     Dates: start: 20180213, end: 20180213
  18. NITRIC OXIDE. [Suspect]
     Active Substance: NITRIC OXIDE
     Dosage: 1 PPM
     Dates: start: 20180227, end: 20180227

REACTIONS (1)
  - Hypoxia [Recovered/Resolved]

NARRATIVE: CASE EVENT DATE: 20180227
